FAERS Safety Report 10395213 (Version 1)
Quarter: 2014Q3

REPORT INFORMATION
  Report Type: Spontaneous
  Country: US (occurrence: None)
  Receive Date: 20140815
  Receipt Date: 20140815
  Transmission Date: 20150326
  Serious: No
  Sender: FDA-Public Use
  Company Number: None

PATIENT
  Age: 67 Year
  Sex: Male
  Weight: 102.3 kg

DRUGS (1)
  1. HYDRALAZINE [Suspect]
     Active Substance: HYDRALAZINE HYDROCHLORIDE
     Indication: HYPERTENSION
     Route: 048
     Dates: start: 20140629, end: 20140702

REACTIONS (7)
  - Rash [None]
  - Urticaria [None]
  - Purpura [None]
  - Pruritus [None]
  - Angina pectoris [None]
  - Oedema [None]
  - Flushing [None]

NARRATIVE: CASE EVENT DATE: 20140702
